FAERS Safety Report 16156781 (Version 1)
Quarter: 2019Q2

REPORT INFORMATION
  Report Type: Spontaneous
  Country: US (occurrence: US)
  Receive Date: 20190404
  Receipt Date: 20190404
  Transmission Date: 20190711
  Serious: Yes (Other)
  Sender: FDA-Public Use
  Company Number: US-ROCHE-2291762

PATIENT
  Age: 33 Year
  Sex: Female

DRUGS (2)
  1. CELLCEPT [Suspect]
     Active Substance: MYCOPHENOLATE MOFETIL\MYCOPHENOLATE MOFETIL HYDROCHLORIDE
     Indication: PEMPHIGUS
     Dosage: OSCILLATED BETWEEN THE CAPSULE AND TABLET
     Route: 048
     Dates: start: 201002, end: 2011
  2. CELLCEPT [Suspect]
     Active Substance: MYCOPHENOLATE MOFETIL\MYCOPHENOLATE MOFETIL HYDROCHLORIDE
     Indication: PEMPHIGUS
     Dosage: OSCILLATED BETWEEN THE CAPSULE AND TABLET
     Route: 048
     Dates: start: 201002, end: 2011

REACTIONS (4)
  - Off label use [Unknown]
  - Intentional product use issue [Unknown]
  - Meniscus injury [Unknown]
  - Weight increased [Not Recovered/Not Resolved]

NARRATIVE: CASE EVENT DATE: 201002
